APPROVED DRUG PRODUCT: DECITABINE
Active Ingredient: DECITABINE
Strength: 50MG/VIAL
Dosage Form/Route: INJECTABLE;INTRAVENOUS
Application: A208601 | Product #001
Applicant: CIPLA LTD
Approved: Nov 16, 2017 | RLD: No | RS: No | Type: DISCN